FAERS Safety Report 6072084-9 (Version None)
Quarter: 2009Q1

REPORT INFORMATION
  Report Type: 
  Country: None (occurrence: None)
  Receive Date: 20090210
  Receipt Date: 20090202
  Transmission Date: 20090719
  Serious: Yes (Other)
  Sender: FDA-Public Use
  Company Number: US-ASTRAZENECA-2009UW03011

PATIENT
  Sex: Male

DRUGS (1)
  1. NEXIUM [Suspect]
     Route: 048
     Dates: start: 20070816

REACTIONS (4)
  - GASTROOESOPHAGEAL REFLUX DISEASE [None]
  - LARYNGEAL CANCER [None]
  - LARYNGEAL PROSTHESIS USER [None]
  - LARYNGECTOMY [None]
